FAERS Safety Report 10479955 (Version 1)
Quarter: 2014Q3

REPORT INFORMATION
  Report Type: Report from Study
  Country: GB (occurrence: GB)
  Receive Date: 20140929
  Receipt Date: 20140929
  Transmission Date: 20150326
  Serious: Yes (Hospitalization)
  Sender: FDA-Public Use
  Company Number: GB-ROCHE-1467244

PATIENT
  Age: 77 Year
  Sex: Female
  Weight: 59 kg

DRUGS (2)
  1. RITUXIMAB [Suspect]
     Active Substance: RITUXIMAB
     Indication: RHEUMATOID ARTHRITIS
     Dosage: DATE OF LAST DOSE PRIOR TO SAE ONSET:15/NOV/2011
     Route: 065
     Dates: start: 20101115
  2. PLAQUENIL [Concomitant]
     Active Substance: HYDROXYCHLOROQUINE SULFATE
     Route: 065
     Dates: start: 20120424

REACTIONS (1)
  - Carcinoid tumour of the appendix [Unknown]

NARRATIVE: CASE EVENT DATE: 20140117
